FAERS Safety Report 4675907-0 (Version None)
Quarter: 2005Q2

REPORT INFORMATION
  Report Type: 
  Country: None (occurrence: None)
  Receive Date: 20050527
  Receipt Date: 20050517
  Transmission Date: 20051028
  Serious: Yes (Hospitalization)
  Sender: FDA-Public Use
  Company Number: JP-JNJFOC-20031006258

PATIENT
  Sex: Male

DRUGS (6)
  1. REMICADE [Suspect]
     Route: 041
  2. REMICADE [Suspect]
     Route: 041
  3. REMICADE [Suspect]
     Indication: CROHN'S DISEASE
     Route: 041
  4. IMURAN [Suspect]
     Indication: CROHN'S DISEASE
     Route: 049
  5. RHEUMATREX [Suspect]
     Indication: DRUG USE FOR UNKNOWN INDICATION
  6. PREDONINE [Concomitant]
     Route: 049

REACTIONS (3)
  - CITROBACTER INFECTION [None]
  - ENTEROBACTER INFECTION [None]
  - SEPSIS [None]
